FAERS Safety Report 4367712-X (Version None)
Quarter: 2004Q2

REPORT INFORMATION
  Report Type: 
  Country: None (occurrence: None)
  Receive Date: 20040601
  Receipt Date: 20040525
  Transmission Date: 20050107
  Serious: Yes (Hospitalization, Other)
  Sender: FDA-Public Use
  Company Number: JP-JNJFOC-20040301721

PATIENT
  Age: 61 Year
  Sex: Male

DRUGS (4)
  1. RISPERDAL [Suspect]
     Route: 049
     Dates: start: 20031101, end: 20040207
  2. RISPERDAL [Suspect]
     Indication: SCHIZOPHRENIA
     Route: 049
     Dates: start: 20031101, end: 20040207
  3. FLUNITRAZEPAM [Concomitant]
     Route: 049
  4. THIORIDAZINE HCL [Concomitant]
     Route: 049

REACTIONS (1)
  - PANCYTOPENIA [None]
